FAERS Safety Report 8843473 (Version 1)
Quarter: 2012Q4

REPORT INFORMATION
  Report Type: 
  Country: FR (occurrence: FR)
  Receive Date: 20121016
  Receipt Date: 20121016
  Transmission Date: 20130627
  Serious: Yes (Other)
  Sender: FDA-Public Use
  Company Number: FR-MYLANLABS-2012S1020683

PATIENT
  Age: 48 Year
  Sex: Female

DRUGS (2)
  1. VANCOMYCIN [Suspect]
     Indication: OSTEOMYELITIS
     Dosage: continuous perfusion through a central venous catheter
     Route: 041
  2. CEFTRIAXONE [Concomitant]
     Indication: OSTEOMYELITIS
     Route: 065

REACTIONS (6)
  - Thrombophlebitis [Recovered/Resolved]
  - Pyrexia [Recovered/Resolved]
  - Chills [Recovered/Resolved]
  - Tachycardia [Recovered/Resolved]
  - Chest pain [Recovered/Resolved]
  - Neck pain [Recovered/Resolved]
